FAERS Safety Report 18997009 (Version 1)
Quarter: 2021Q1

REPORT INFORMATION
  Report Type: Spontaneous
  Country: PL (occurrence: PL)
  Receive Date: 20210311
  Receipt Date: 20210311
  Transmission Date: 20210420
  Serious: Yes (Life-Threatening, Hospitalization)
  Sender: FDA-Public Use
  Company Number: NVSC2021PL054481

PATIENT
  Age: 4 Year
  Sex: Female
  Weight: 20 kg

DRUGS (1)
  1. AMOKSIKLAV [Suspect]
     Active Substance: AMOXICILLIN\CLAVULANATE POTASSIUM
     Indication: RESPIRATORY TRACT INFECTION
     Dosage: 5 ML, Q12H
     Route: 048
     Dates: start: 20200305, end: 20200305

REACTIONS (6)
  - Blood pressure decreased [Recovered/Resolved]
  - Somnolence [Recovered/Resolved]
  - Swelling of eyelid [Recovered/Resolved]
  - Peripheral swelling [Recovered/Resolved]
  - Urticaria [Recovered/Resolved]
  - Anxiety [Recovered/Resolved]

NARRATIVE: CASE EVENT DATE: 20200305
